FAERS Safety Report 14765262 (Version 1)
Quarter: 2018Q2

REPORT INFORMATION
  Report Type: Spontaneous
  Country: JP (occurrence: JP)
  Receive Date: 20180416
  Receipt Date: 20180416
  Transmission Date: 20180711
  Serious: Yes (Death, Other)
  Sender: FDA-Public Use
  Company Number: JP-UNITED THERAPEUTICS-UNT-2017-017905

PATIENT
  Age: 6 Decade
  Sex: Female
  Weight: 37 kg

DRUGS (1)
  1. REMODULIN [Suspect]
     Active Substance: TREPROSTINIL
     Indication: PRODUCT USED FOR UNKNOWN INDICATION
     Dosage: 0.044 ?G/KG, CONTINUING
     Route: 041
     Dates: start: 20171107

REACTIONS (1)
  - Colon cancer [Fatal]
